FAERS Safety Report 7448159-6 (Version None)
Quarter: 2011Q2

REPORT INFORMATION
  Report Type: 
  Country: None (occurrence: None)
  Receive Date: 20110429
  Receipt Date: 20100311
  Transmission Date: 20111010
  Serious: No
  Sender: FDA-Public Use
  Company Number: US-ASTRAZENECA-2010SE10701

PATIENT
  Age: 23346 Day
  Sex: Female
  Weight: 63.5 kg

DRUGS (2)
  1. SYNTHROID [Concomitant]
  2. NEXIUM [Suspect]
     Indication: GASTROOESOPHAGEAL REFLUX DISEASE
     Route: 048
     Dates: start: 20091001, end: 20091001

REACTIONS (3)
  - LIP BLISTER [None]
  - ERYTHEMA [None]
  - PYREXIA [None]
